FAERS Safety Report 12093298 (Version 1)
Quarter: 2016Q1

REPORT INFORMATION
  Report Type: Spontaneous
  Country: ES (occurrence: None)
  Receive Date: 20160216
  Receipt Date: 20160216
  Transmission Date: 20160526
  Serious: Yes (Disabling)
  Sender: FDA-Public Use
  Company Number: ES-ALSI-201600027

PATIENT
  Age: 28 Year
  Sex: Male

DRUGS (1)
  1. OXIGENO MEDICINAL GAS GASMEDI 99.5% GAS COMPRIMIDO MEDICINAL OXYGEN [Suspect]
     Active Substance: OXYGEN

REACTIONS (4)
  - Injury [None]
  - Limb injury [None]
  - Device connection issue [None]
  - Product quality issue [None]

NARRATIVE: CASE EVENT DATE: 20150305
